FAERS Safety Report 19465104 (Version 1)
Quarter: 2021Q2

REPORT INFORMATION
  Report Type: Report from Study
  Country: ES (occurrence: ES)
  Receive Date: 20210627
  Receipt Date: 20210627
  Transmission Date: 20210717
  Serious: Yes (Other)
  Sender: FDA-Public Use
  Company Number: NVSC2021ES135537

PATIENT
  Age: 41 Year
  Sex: Male

DRUGS (1)
  1. METFORMIN [Suspect]
     Active Substance: METFORMIN HYDROCHLORIDE
     Indication: TYPE 2 DIABETES MELLITUS
     Dosage: UNK
     Route: 065

REACTIONS (14)
  - Neuropathy peripheral [Unknown]
  - Blood cholesterol increased [Unknown]
  - Hyperglycaemia [Unknown]
  - Mental impairment [Unknown]
  - Anxiety [Unknown]
  - Depression [Unknown]
  - Blood glucose abnormal [Unknown]
  - Diabetic neuropathy [Unknown]
  - Sensory loss [Unknown]
  - Lethargy [Unknown]
  - Hypoaesthesia [Unknown]
  - Hypoglycaemia [Unknown]
  - Arthralgia [Unknown]
  - Mood swings [Unknown]
